FAERS Safety Report 16813778 (Version 1)
Quarter: 2019Q3

REPORT INFORMATION
  Report Type: Spontaneous
  Country: US (occurrence: US)
  Receive Date: 20190725
  Receipt Date: 20190725
  Transmission Date: 20191005
  Serious: No
  Sender: FDA-Public Use
  Company Number: None

PATIENT
  Age: 46 Year
  Sex: Male

DRUGS (1)
  1. BACITRACIN/NEOMYCIN/POLYMYXIN B [Suspect]
     Active Substance: BACITRACIN\NEOMYCIN\POLYMYXIN B SULFATE
     Indication: CONJUNCTIVITIS
     Dosage: ?          OTHER DOSE:THIN RIBBON UNITS;?
     Route: 047
     Dates: start: 20180911, end: 20180930

REACTIONS (3)
  - Vision blurred [None]
  - Recalled product administered [None]
  - Headache [None]

NARRATIVE: CASE EVENT DATE: 20180911
